FAERS Safety Report 5622747-1 (Version None)
Quarter: 2008Q1

REPORT INFORMATION
  Report Type: 
  Country: None (occurrence: None)
  Receive Date: 20080212
  Receipt Date: 20080207
  Transmission Date: 20080703
  Serious: Yes (Hospitalization)
  Sender: FDA-Public Use
  Company Number: US-BRISTOL-MYERS SQUIBB COMPANY-14028351

PATIENT
  Age: 73 Year
  Sex: Female
  Weight: 50 kg

DRUGS (15)
  1. CETUXIMAB [Suspect]
     Indication: NON-SMALL CELL LUNG CANCER
     Dosage: 250 MG/M2 GIVEN ON DAY 1,8, AND 15. START DATE OF THE THERAPY 01OCT07
     Dates: start: 20071217, end: 20071217
  2. DOCETAXEL [Suspect]
     Indication: NON-SMALL CELL LUNG CANCER
     Dosage: 30 MG/M2 GIVEN ON DAY 1 AND 8. START DATE OF THE THERAPY 01OCT07
     Dates: start: 20071217, end: 20071217
  3. GEMCITABINE [Suspect]
     Indication: NON-SMALL CELL LUNG CANCER
     Dosage: 1000 MG/M2 GIVEN ON DAY 1 AND 8. START DATE OF THE THERAPY 01OCT07
     Dates: start: 20071217, end: 20071217
  4. ASPIRIN [Concomitant]
  5. XALATAN [Concomitant]
  6. TRAMADOL HCL [Concomitant]
  7. PRILOSEC [Concomitant]
  8. SPIRIVA [Concomitant]
  9. ADVAIR DISKUS 100/50 [Concomitant]
  10. ALBUTEROL [Concomitant]
  11. PRO-AIR [Concomitant]
  12. DEXAMETHASONE TAB [Concomitant]
  13. FORADIL [Concomitant]
  14. LORAZEPAM [Concomitant]
  15. COMPAZINE [Concomitant]

REACTIONS (1)
  - ACUTE MYOCARDIAL INFARCTION [None]
